FAERS Safety Report 6332210-0 (Version None)
Quarter: 2009Q3

REPORT INFORMATION
  Report Type: 
  Country: None (occurrence: None)
  Receive Date: 20090828
  Receipt Date: 20090816
  Transmission Date: 20100115
  Serious: Yes (Other)
  Sender: FDA-Public Use
  Company Number: CN-PFIZER INC-2009257604

PATIENT
  Age: 32 Year

DRUGS (1)
  1. VIAGRA [Suspect]
     Route: 048
     Dates: start: 20090101

REACTIONS (2)
  - CEREBRAL INFARCTION [None]
  - INTENTIONAL DRUG MISUSE [None]
